FAERS Safety Report 21988141 (Version 1)
Quarter: 2023Q1

REPORT INFORMATION
  Report Type: Report from Study
  Country: IT (occurrence: IT)
  Receive Date: 20230214
  Receipt Date: 20230214
  Transmission Date: 20230418
  Serious: Yes (Hospitalization)
  Sender: FDA-Public Use
  Company Number: None

PATIENT
  Age: 69 Year
  Sex: Male

DRUGS (5)
  1. MIRTAZAPINE [Suspect]
     Active Substance: MIRTAZAPINE
     Indication: Psychomotor hyperactivity
     Dosage: DOSAGE: 1; UNIT OF MEASURE: DOSE UNIT; FREQUENCY OF ADMINISTRATION: DAILY; ROUTE OF ADMINISTRATION:
     Route: 048
     Dates: start: 20220810, end: 20220811
  2. CLONAZEPAM [Suspect]
     Active Substance: CLONAZEPAM
     Indication: Generalised anxiety disorder
     Dosage: DOSAGE: 1; UNIT OF MEASURE: DOSE UNIT; FREQUENCY OF ADMINISTRATION: DAILY; ROUTE OF ADMINISTRATION:
     Route: 048
     Dates: start: 20220810, end: 20220811
  3. SERTRALINE HYDROCHLORIDE [Concomitant]
     Active Substance: SERTRALINE HYDROCHLORIDE
     Indication: Generalised anxiety disorder
     Dosage: DOSAGE: 100; UNIT OF MEASUREMENT: MILLIGRAMS; ROUTE OF ADMINISTRATION: ORAL.
     Route: 048
  4. PANTOPRAZOL SODICO SESQUI HIDRATADO [Concomitant]
     Indication: Dyspepsia
     Dosage: DOSAGE: 1; UNIT OF MEASURE: DOSE UNIT;
  5. BENSERAZIDE HYDROCHLORIDE\LEVODOPA [Concomitant]
     Active Substance: BENSERAZIDE HYDROCHLORIDE\LEVODOPA
     Indication: Parkinson^s disease
     Dosage: DOSAGE: 1; UNIT OF MEASURE: MILLIGRAM

REACTIONS (1)
  - Sopor [Recovering/Resolving]

NARRATIVE: CASE EVENT DATE: 20220810
